FAERS Safety Report 12715636 (Version 1)
Quarter: 2016Q3

REPORT INFORMATION
  Report Type: Spontaneous
  Country: US (occurrence: HT)
  Receive Date: 20160906
  Receipt Date: 20160906
  Transmission Date: 20161109
  Serious: Yes (Other)
  Sender: FDA-Public Use
  Company Number: US-CIPLA LTD.-2016HT17786

PATIENT

DRUGS (19)
  1. WARFARIN [Interacting]
     Active Substance: WARFARIN
     Dosage: 8.5 MG/DAY
     Route: 065
  2. WARFARIN [Interacting]
     Active Substance: WARFARIN
     Dosage: 7.5 MG/DAY
     Route: 065
  3. WARFARIN [Interacting]
     Active Substance: WARFARIN
     Dosage: 7 MG, DAILY
     Route: 065
  4. POTASSIUM CHLORIDE. [Concomitant]
     Active Substance: POTASSIUM CHLORIDE
     Dosage: 10 MEQ, BID
     Route: 065
  5. BOSENTAN. [Concomitant]
     Active Substance: BOSENTAN
     Dosage: 125 MG, BID
     Route: 065
  6. TREPROSTINIL [Concomitant]
     Active Substance: TREPROSTINIL
     Dosage: UNK, INCREASED DOSE
     Route: 042
  7. WARFARIN [Suspect]
     Active Substance: WARFARIN
     Indication: ATRIAL FIBRILLATION
     Dosage: 8 TO 10.5 MG DAILY
     Route: 065
  8. FERROUS SULFATE. [Concomitant]
     Active Substance: FERROUS SULFATE
     Dosage: 325 MG, BID
     Route: 065
  9. GABAPENTIN. [Concomitant]
     Active Substance: GABAPENTIN
     Dosage: 100 MG, TID
     Route: 065
  10. MAUBY [Interacting]
     Active Substance: HERBALS
     Indication: DECREASED APPETITE
     Dosage: UNK, DAILY
     Route: 065
  11. OMEPRAZOLE. [Concomitant]
     Active Substance: OMEPRAZOLE
     Dosage: 40 MG,DAILY
     Route: 065
  12. MAUBY [Interacting]
     Active Substance: HERBALS
     Dosage: UNK, THREE TIMES A WEEK
     Route: 065
  13. TREPROSTINIL [Concomitant]
     Active Substance: TREPROSTINIL
     Indication: PULMONARY HYPERTENSION
     Dosage: UNK,EVERY WEEK
     Route: 042
  14. TADALAFIL [Concomitant]
     Active Substance: TADALAFIL
     Dosage: 40 MG,DAILY
     Route: 065
  15. FUROSEMIDE. [Concomitant]
     Active Substance: FUROSEMIDE
     Dosage: 80 MG, BID
     Route: 065
  16. WARFARIN [Interacting]
     Active Substance: WARFARIN
     Indication: PULMONARY HYPERTENSION
     Dosage: 10.5 MG/DAY
     Route: 065
  17. METOLAZONE. [Concomitant]
     Active Substance: METOLAZONE
     Dosage: 10 MG, BID
     Route: 065
  18. SPIRONOLACTONE. [Concomitant]
     Active Substance: SPIRONOLACTONE
     Dosage: 50 MG, DAILY
     Route: 065
  19. TORSEMIDE. [Concomitant]
     Active Substance: TORSEMIDE
     Dosage: 100 MG, BID
     Route: 065

REACTIONS (6)
  - Herbal interaction [None]
  - Drug interaction [Unknown]
  - International normalised ratio increased [Recovered/Resolved]
  - Decreased appetite [Unknown]
  - Anticoagulation drug level below therapeutic [Recovered/Resolved]
  - Drug dose omission [Unknown]
